FAERS Safety Report 6265507-3 (Version None)
Quarter: 2009Q3

REPORT INFORMATION
  Report Type: 
  Country: None (occurrence: None)
  Receive Date: 20090709
  Receipt Date: 20090709
  Transmission Date: 20100115
  Serious: Yes (Other)
  Sender: FDA-Public Use
  Company Number: None

PATIENT
  Age: 29 Year
  Sex: Female
  Weight: 69 kg

DRUGS (4)
  1. OTRIVIN [Suspect]
     Indication: NASAL CONGESTION
     Dosage: NASAL, 1 OR 2 DROPS, 6 OR 7 TIMES DAILY, NASAL
     Dates: start: 20050101, end: 20050101
  2. OTRIVIN [Suspect]
     Indication: NASAL CONGESTION
     Dosage: NASAL, 1 OR 2 DROPS, 6 OR 7 TIMES DAILY, NASAL
     Dates: start: 20090613
  3. SODIUM CHLORIDE 0.9% [Concomitant]
  4. BUDECORT ^ASTRA^ (BUDESONIDE) [Concomitant]

REACTIONS (4)
  - DRUG DEPENDENCE [None]
  - DRUG INEFFECTIVE [None]
  - INTENTIONAL DRUG MISUSE [None]
  - WRONG TECHNIQUE IN DRUG USAGE PROCESS [None]
